FAERS Safety Report 7770431-0 (Version None)
Quarter: 2011Q3

REPORT INFORMATION
  Report Type: 
  Country: None (occurrence: None)
  Receive Date: 20110922
  Receipt Date: 20100812
  Transmission Date: 20111222
  Serious: No
  Sender: FDA-Public Use
  Company Number: US-ASTRAZENECA-2010SE37946

PATIENT
  Sex: Male
  Weight: 123.4 kg

DRUGS (1)
  1. SEROQUEL [Suspect]
     Route: 048

REACTIONS (4)
  - DIARRHOEA [None]
  - BACK DISORDER [None]
  - DIZZINESS [None]
  - MALAISE [None]
